FAERS Safety Report 8096655-3 (Version None)
Quarter: 2012Q1

REPORT INFORMATION
  Report Type: 
  Country: None (occurrence: None)
  Receive Date: 20120129
  Receipt Date: 20111129
  Transmission Date: 20120608
  Serious: Yes (Hospitalization)
  Sender: FDA-Public Use
  Company Number: US-ABBOTT-11P-163-0880171-00

PATIENT
  Age: 55 Year
  Sex: Female

DRUGS (7)
  1. CALCIUM CARBONATE [Concomitant]
     Indication: OSTEOPENIA
     Dosage: 2 TABS DAILY
  2. EVISTA [Concomitant]
     Indication: OSTEOPENIA
     Dosage: 60MG DAILY
  3. LISINOPRIL [Concomitant]
     Indication: BLOOD PRESSURE
     Dosage: 20MG DAILY
  4. MULTI-VITAMIN [Concomitant]
     Indication: PRODUCT USED FOR UNKNOWN INDICATION
     Dosage: 1 DAILY
  5. HUMIRA [Suspect]
     Indication: CROHN'S DISEASE
     Dates: start: 20110405
  6. CHOLECALCIFEROL [Concomitant]
     Indication: VITAMIN D DECREASED
     Dosage: UNDER TONGUE
  7. IRON PILL [Concomitant]
     Indication: PRODUCT USED FOR UNKNOWN INDICATION
     Dosage: DAILY

REACTIONS (3)
  - ECZEMA [None]
  - STAPHYLOCOCCAL INFECTION [None]
  - ERYTHEMA [None]
